FAERS Safety Report 4551575-3 (Version None)
Quarter: 2005Q1

REPORT INFORMATION
  Report Type: 
  Country: None (occurrence: None)
  Receive Date: 20050111
  Receipt Date: 20041230
  Transmission Date: 20050727
  Serious: Yes (Death, Hospitalization)
  Sender: FDA-Public Use
  Company Number: 2003UW15501

PATIENT
  Age: 80 Year
  Sex: Female
  Weight: 58.9676 kg

DRUGS (25)
  1. SEROQUEL [Suspect]
     Indication: DEMENTIA ALZHEIMER'S TYPE
     Dosage: 25 MG QD PO
     Route: 048
     Dates: start: 20030715
  2. SEROQUEL [Suspect]
     Indication: DEMENTIA ALZHEIMER'S TYPE
     Dosage: 50 MG QD PO
     Route: 048
     Dates: start: 20030725, end: 20030728
  3. SEROQUEL [Suspect]
     Indication: DEMENTIA ALZHEIMER'S TYPE
     Dosage: 125 MG QD PO
     Route: 048
     Dates: start: 20030729, end: 20030729
  4. SEROQUEL [Suspect]
     Indication: DEMENTIA ALZHEIMER'S TYPE
     Dosage: 75 MG QD PO
     Route: 048
     Dates: start: 20030730, end: 20030730
  5. SEROQUEL [Suspect]
     Indication: DEMENTIA ALZHEIMER'S TYPE
     Dosage: 100 MG QD PO
     Route: 048
     Dates: start: 20030731, end: 20030831
  6. SEROQUEL [Suspect]
     Indication: DEMENTIA ALZHEIMER'S TYPE
     Dosage: 125 MG QD PO
     Route: 048
     Dates: start: 20030802, end: 20030803
  7. SEROQUEL [Suspect]
     Indication: DEMENTIA ALZHEIMER'S TYPE
     Dosage: 150 MG QD PO
     Route: 048
     Dates: start: 20030804, end: 20030804
  8. SEROQUEL [Suspect]
     Indication: DEMENTIA ALZHEIMER'S TYPE
     Dosage: 125 MG QD PO
     Route: 048
     Dates: start: 20030805, end: 20030805
  9. SEROQUEL [Suspect]
     Indication: DEMENTIA ALZHEIMER'S TYPE
     Dosage: 150 MG QD PO
     Route: 048
     Dates: start: 20030806, end: 20030809
  10. SEROQUEL [Suspect]
     Indication: DEMENTIA ALZHEIMER'S TYPE
     Dosage: 175 MG QD PO
     Route: 048
     Dates: start: 20030810, end: 20030812
  11. SEROQUEL [Suspect]
     Indication: DEMENTIA ALZHEIMER'S TYPE
     Dosage: 225 MG QD PO
     Route: 048
     Dates: start: 20030813, end: 20030813
  12. SEROQUEL [Suspect]
     Indication: DEMENTIA ALZHEIMER'S TYPE
     Dosage: 300 MG QD PO
     Route: 048
     Dates: start: 20030814, end: 20030814
  13. SEROQUEL [Suspect]
     Indication: DEMENTIA ALZHEIMER'S TYPE
     Dosage: 450 MG QD PO
     Route: 048
     Dates: start: 20030815, end: 20030818
  14. SEROQUEL [Suspect]
     Indication: DEMENTIA ALZHEIMER'S TYPE
     Dosage: 550 MG QD PO
     Route: 048
     Dates: start: 20030819, end: 20030819
  15. SEROQUEL [Suspect]
     Indication: DEMENTIA ALZHEIMER'S TYPE
     Dosage: 25 MG QD PO
     Route: 048
     Dates: start: 20030825, end: 20030825
  16. SEROQUEL [Suspect]
     Indication: DEMENTIA ALZHEIMER'S TYPE
     Dosage: 50 MG QD PO
     Route: 048
     Dates: start: 20030826, end: 20030826
  17. SEROQUEL [Suspect]
     Indication: DEMENTIA ALZHEIMER'S TYPE
     Dosage: 25 MG QD PO
     Route: 048
     Dates: start: 20030827, end: 20030827
  18. ASPIRIN [Concomitant]
  19. LACTULOSE [Concomitant]
  20. LEVOTHYROXINE [Concomitant]
  21. SERTRALINE HCL [Concomitant]
  22. VITAMIN E [Concomitant]
  23. GALANTAMINE [Concomitant]
  24. LORAZEPAM [Concomitant]
  25. ACETAMINOPHEN [Concomitant]

REACTIONS (5)
  - ARTERIOSCLEROSIS [None]
  - CARDIO-RESPIRATORY ARREST [None]
  - CONVULSION [None]
  - DEMENTIA ALZHEIMER'S TYPE [None]
  - DISEASE PROGRESSION [None]
